FAERS Safety Report 11826140 (Version 1)
Quarter: 2015Q4

REPORT INFORMATION
  Report Type: Report from Study
  Country: TW (occurrence: TW)
  Receive Date: 20151211
  Receipt Date: 20151211
  Transmission Date: 20160305
  Serious: Yes (Other)
  Sender: FDA-Public Use
  Company Number: TW-009507513-1512TWN003317

PATIENT
  Age: 62 Year
  Sex: Female

DRUGS (3)
  1. PEGINTERFERON ALFA-2B [Suspect]
     Active Substance: PEGINTERFERON ALFA-2B
     Indication: HEPATITIS C
     Dosage: (1.5) MICROGRAM/KG, 1 IN 1 WK
     Route: 058
  2. RIBAVIRIN. [Suspect]
     Active Substance: RIBAVIRIN
     Indication: HEPATITIS C
     Dosage: BASED ON BODY WEIGHT (1000 MG/D FOR WEIGHT { 75 KG AND 1200 MG/D FOR WEIGHT } OR EQUAL TO 75 KG)
     Route: 048
  3. BOCEPREVIR [Suspect]
     Active Substance: BOCEPREVIR
     Indication: HEPATITIS C
     Dosage: 2400 MG (800, 3 IN 1 D)
     Route: 065

REACTIONS (1)
  - Abdominal distension [Unknown]
